FAERS Safety Report 6725768-0 (Version None)
Quarter: 2010Q2

REPORT INFORMATION
  Report Type: 
  Country: None (occurrence: None)
  Receive Date: 20100512
  Receipt Date: 20100427
  Transmission Date: 20101027
  Serious: Yes (Death)
  Sender: FDA-Public Use
  Company Number: B0651100A

PATIENT

DRUGS (7)
  1. MELPHALAN HYDROCHLORIDE [Suspect]
     Indication: MULTIPLE MYELOMA
     Dosage: 100 MG/M2 / INTRAVENOUS
     Route: 042
  2. VINCRISTINE [Suspect]
     Indication: MULTIPLE MYELOMA
     Dosage: 1 MG/M2 / SINGLE DOSE / INTRAVENOUS
     Route: 042
  3. DOXORUBICIN HCL [Suspect]
     Indication: MULTIPLE MYELOMA
     Dosage: 50 MG/M2 / SINGLE DOSE / INTRAVENOUS
     Route: 042
  4. DEXAMETHASONE [Suspect]
     Indication: MULTIPLE MYELOMA
     Dosage: 40 MG / PER DAY / INTRAVENOUS
     Route: 042
  5. CYCLOPHOSPHAMIDE [Suspect]
     Indication: MULTIPLE MYELOMA
     Dosage: 4 G/M2 / INTRAVENOUS
     Route: 042
  6. GRANULOCYTE COL.STIM.FACT INJECTION (GRANULOCYTE COL.STIM.FACT) [Suspect]
     Indication: MULTIPLE MYELOMA
  7. MARROW AUTOTRANSPLANT (FORMULATION UNKNOWN) (MARROW AUTOTRANSPLANT) [Suspect]

REACTIONS (1)
  - CEREBRAL HAEMORRHAGE [None]
